FAERS Safety Report 24256339 (Version 5)
Quarter: 2024Q3

REPORT INFORMATION
  Report Type: Report from Study
  Country: PT (occurrence: PT)
  Receive Date: 20240828
  Receipt Date: 20240926
  Transmission Date: 20241017
  Serious: Yes (Other)
  Sender: ABBVIE
  Company Number: PT-ABBVIE-5892820

PATIENT
  Age: 69 Year
  Sex: Female

DRUGS (32)
  1. CARBIDOPA\LEVODOPA [Suspect]
     Active Substance: CARBIDOPA\LEVODOPA
     Indication: Multiple system atrophy
     Dosage: 20 MG + 5 MG?FREQUENCY TEXT: MORN: 10CC; MAINT: 4.4CC/H; EXT:2CC
     Route: 050
     Dates: start: 2024, end: 2024
  2. CARBIDOPA\LEVODOPA [Suspect]
     Active Substance: CARBIDOPA\LEVODOPA
     Dosage: 20 MG + 5 MG?LAST ADMIN DATE 2024?RELATED TO PRODUCT COMPLAINT: TRUE?FREQUENCY TEXT: MORN: 17.5CC...
     Route: 050
     Dates: start: 20240724, end: 2024
  3. CARBIDOPA\LEVODOPA [Suspect]
     Active Substance: CARBIDOPA\LEVODOPA
     Dosage: 20 MG + 5 MG?FREQUENCY TEXT: MORN: 16CC; MAINT: 5.4CC/H; EXT:3CC?FIRST ADMIN DATE: 2024
     Route: 050
     Dates: start: 2024
  4. CARBIDOPA\LEVODOPA [Suspect]
     Active Substance: CARBIDOPA\LEVODOPA
     Route: 050
     Dates: start: 2024, end: 2024
  5. CARVEDILOL [Concomitant]
     Active Substance: CARVEDILOL
     Indication: Product used for unknown indication
     Dosage: 2 TABLET
     Route: 048
  6. CARVEDILOL [Concomitant]
     Active Substance: CARVEDILOL
     Indication: Product used for unknown indication
     Dosage: 2 TABLET?FORM STRENGTH: 25 MILLIGRAM?FREQUENCY TEXT: 1 TAB AT BREAKFAST + 1 TAB AT DINNER?START D...
     Route: 048
  7. QUETIAPINE [Concomitant]
     Active Substance: QUETIAPINE
     Indication: Product used for unknown indication
     Dosage: 1 TABLET
     Route: 048
  8. QUETIAPINE [Concomitant]
     Active Substance: QUETIAPINE
     Indication: Product used for unknown indication
     Dosage: 1 TABLET? FORM STRENGTH: 100 MILLIGRAM?FREQUENCY TEXT: AT DINNER?START DATE TEXT: BEFORE DUODOPA
     Route: 048
  9. IDON [Concomitant]
     Indication: Product used for unknown indication
     Dates: start: 202408
  10. AMANTADINE HYDROCHLORIDE [Concomitant]
     Active Substance: AMANTADINE HYDROCHLORIDE
     Indication: Product used for unknown indication
     Dosage: 2 TABLET? FORM STRENGTH: 100 MILLIGRAM?FREQUENCY TEXT: 1 TAB AT BREAKFAST + 1 TAB LUNCH?START DAT...
     Route: 048
  11. DOMPERIDONE [Concomitant]
     Active Substance: DOMPERIDONE
     Indication: Product used for unknown indication
     Dates: start: 202408
  12. DOMPERIDONE [Concomitant]
     Active Substance: DOMPERIDONE
     Indication: Product used for unknown indication
     Dates: start: 202408
  13. RIVOTRIL [Concomitant]
     Active Substance: CLONAZEPAM
     Indication: Product used for unknown indication
     Dosage: 1.5 TABLET? FORM STRENGTH: 0.5 MILLIGRAM?FREQUENCY TEXT: ?? TAB AT BREAKFAST + 1 DINNER?START DAT...
     Route: 048
  14. FOLIC ACID [Concomitant]
     Active Substance: FOLIC ACID
     Indication: Product used for unknown indication
     Dosage: 2 TABLET?FREQUENCY TEXT: AT SUNDAY?START DATE TEXT: BEFORE DUODOPA
     Route: 048
  15. CHOLECALCIFEROL [Concomitant]
     Active Substance: CHOLECALCIFEROL
     Indication: Product used for unknown indication
     Route: 048
  16. CHOLECALCIFEROL [Concomitant]
     Active Substance: CHOLECALCIFEROL
     Indication: Product used for unknown indication
     Dosage: START DATE TEXT: BEFORE DUODOPA
     Route: 048
  17. PREDNISOLONE [Concomitant]
     Active Substance: PREDNISOLONE
     Indication: Product used for unknown indication
     Dosage: 1.5 TABLET
     Route: 048
  18. PREDNISOLONE [Concomitant]
     Active Substance: PREDNISOLONE
     Indication: Product used for unknown indication
     Dosage: 1.5 TABLET? FORM STRENGTH: 5 MILLIGRAM? FREQUENCY TEXT: AT BREAKFAST? START DATE TEXT: BEFORE DUO...
     Route: 048
  19. PANTOPRAZOLE [Concomitant]
     Active Substance: PANTOPRAZOLE
     Indication: Product used for unknown indication
     Dosage: 1 TABLET
     Route: 048
  20. PANTOPRAZOLE [Concomitant]
     Active Substance: PANTOPRAZOLE
     Indication: Product used for unknown indication
     Dosage: 1 TABLET? FORM STRENGTH: 40 MILLIGRAM?FREQUENCY TEXT: AT FASTING?START DATE TEXT: BEFORE DUODOPA
     Route: 048
  21. METHOTREXATE [Concomitant]
     Active Substance: METHOTREXATE
     Indication: Product used for unknown indication
     Route: 048
  22. METHOTREXATE [Concomitant]
     Active Substance: METHOTREXATE
     Indication: Product used for unknown indication
     Dosage: START DATE TEXT: BEFORE DUODOPA
     Route: 048
  23. LERCANIDIPINE [Concomitant]
     Active Substance: LERCANIDIPINE
     Indication: Product used for unknown indication
     Dosage: 1.5 TABLET
     Route: 048
  24. LERCANIDIPINE [Concomitant]
     Active Substance: LERCANIDIPINE
     Indication: Product used for unknown indication
     Dosage: 1.5 TABLET?FORM STRENGTH: 10 MILLIGRAM?FREQUENCY TEXT: 1 TAB AT BREAKFAST  + ?? TAB AT DINNER?STA...
     Route: 048
  25. ENOXAPARIN [Concomitant]
     Active Substance: ENOXAPARIN
     Indication: Thrombosis
     Dates: start: 20240821, end: 20240823
  26. ENOXAPARIN [Concomitant]
     Active Substance: ENOXAPARIN
     Indication: Thrombosis
     Dates: start: 20240827
  27. XADAGO [Concomitant]
     Active Substance: SAFINAMIDE MESYLATE
     Indication: Product used for unknown indication
     Dosage: 2 TABLET?FORM STRENGTH: 100 MILLIGRAM?FREQUENCY TEXT: AT BREAKFAST?START DATE TEXT: BEFORE DUODOPA
     Route: 048
  28. Aero om [Concomitant]
     Indication: Product used for unknown indication
     Dates: start: 202408
  29. LEVOTHYROXINE [Concomitant]
     Active Substance: LEVOTHYROXINE\LEVOTHYROXINE SODIUM
     Indication: Product used for unknown indication
     Dosage: 1 TABLET? FORM STRENGTH: 0.1 MILLIGRAM?FREQUENCY TEXT: 1 TAB AT FASTING?START DATE TEXT: BEFORE D...
     Route: 048
  30. DARBEPOETIN ALFA [Concomitant]
     Active Substance: DARBEPOETIN ALFA
     Indication: Product used for unknown indication
     Route: 048
  31. SIMETHICONE (DIMETHICONE) [Concomitant]
     Active Substance: DIMETHICONE
     Indication: Product used for unknown indication
     Dates: start: 202408
  32. ASPIRIN [Concomitant]
     Active Substance: ASPIRIN
     Indication: Product used for unknown indication
     Dosage: 1 TABLET FORM STRENGTH: 100MG FREQUENCY TEXT: AT LUNCH START DATE TEXT: BEFORE DUODOPA
     Route: 048
     Dates: end: 20240821

REACTIONS (7)
  - Peripheral artery thrombosis [Not Recovered/Not Resolved]
  - Constipation [Recovered/Resolved]
  - Abdominal pain [Recovered/Resolved]
  - Dyspnoea [Recovered/Resolved]
  - Abdominal distension [Recovered/Resolved]
  - Pneumoperitoneum [Recovered/Resolved]
  - Flatulence [Recovered/Resolved]

NARRATIVE: CASE EVENT DATE: 20240820
